FAERS Safety Report 9708403 (Version 1)
Quarter: 2013Q4

REPORT INFORMATION
  Report Type: Report from Study
  Country: KP (occurrence: KP)
  Receive Date: 20131125
  Receipt Date: 20131125
  Transmission Date: 20140711
  Serious: Yes (Hospitalization)
  Sender: FDA-Public Use
  Company Number: KP-ROCHE-1307088

PATIENT
  Age: 51 Year
  Sex: Female
  Weight: 51.3 kg

DRUGS (9)
  1. VEMURAFENIB [Suspect]
     Indication: METASTASIS
     Dosage: RECEIVED MOST RECENT DOSE 960MG ON 09/NOV/2013.
     Route: 048
     Dates: start: 20131015
  2. DIGOXIN [Suspect]
     Indication: METASTASIS
     Dosage: RECEIVED MOST RECENT DOSE 0.25MG ON 05/NOV/2013
     Route: 048
     Dates: start: 20131008
  3. DURA TEARS [Concomitant]
     Indication: PROPHYLAXIS
     Route: 065
     Dates: start: 20131105
  4. METRONIDAZOLE [Concomitant]
     Indication: VULVOVAGINAL PRURITUS
     Route: 065
     Dates: start: 20131025, end: 20131031
  5. FLUCONAZOLE [Concomitant]
     Indication: VULVOVAGINAL PRURITUS
     Route: 065
     Dates: start: 20131025, end: 20131025
  6. CHLORPHENIRAMINE [Concomitant]
     Indication: RASH
     Route: 065
     Dates: start: 20131025
  7. LACTICARE-HC [Concomitant]
     Route: 065
     Dates: start: 20131025
  8. AMOXICILLIN SODIUM/CLAVULANATE POTASSIUM [Concomitant]
     Indication: PYREXIA
     Route: 065
     Dates: start: 20131030, end: 20131106
  9. BENZYDAMINE [Concomitant]
     Indication: OROPHARYNGEAL PAIN
     Route: 065
     Dates: start: 20131025, end: 20131106

REACTIONS (1)
  - Neutropenia [Recovered/Resolved]
